FAERS Safety Report 18764370 (Version 7)
Quarter: 2022Q2

REPORT INFORMATION
  Report Type: Report from Study
  Country: IE (occurrence: IE)
  Receive Date: 20210120
  Receipt Date: 20220407
  Transmission Date: 20220720
  Serious: Yes (Hospitalization, Other)
  Sender: FDA-Public Use
  Company Number: IE-TAKEDA-IE201501971

PATIENT
  Age: 10 Year
  Sex: Male

DRUGS (51)
  1. IDURSULFASE [Suspect]
     Active Substance: IDURSULFASE
     Indication: Mucopolysaccharidosis II
     Dosage: 0.5 MILLIGRAM/KILOGRAM, 1/WEEK
     Route: 042
     Dates: start: 20070823, end: 201502
  2. IDURSULFASE [Suspect]
     Active Substance: IDURSULFASE
     Dosage: 0.5 MILLIGRAM/KILOGRAM, Q2WEEKS
     Route: 042
     Dates: start: 201503, end: 20150828
  3. HYDROCORTISONE [Concomitant]
     Active Substance: HYDROCORTISONE
     Indication: Skin irritation
     Dosage: UNK
     Route: 061
     Dates: start: 20050427, end: 20050511
  4. HYDROCORTISONE [Concomitant]
     Active Substance: HYDROCORTISONE
     Dosage: UNK
     Route: 061
     Dates: start: 20050515, end: 20050518
  5. ERYTHROMYCIN [Concomitant]
     Active Substance: ERYTHROMYCIN
     Indication: Product used for unknown indication
     Dosage: UNK
     Route: 048
     Dates: start: 20081202, end: 20081209
  6. OMEPRAZOLE [Concomitant]
     Active Substance: OMEPRAZOLE
     Dosage: UNK
     Route: 048
  7. SPIRONOLACTONE [Concomitant]
     Active Substance: SPIRONOLACTONE
     Indication: Nocturnal dyspnoea
     Dosage: UNK
     Route: 048
     Dates: start: 20161125
  8. DEXTROSE\SODIUM CHLORIDE [Concomitant]
     Active Substance: DEXTROSE\SODIUM CHLORIDE
     Indication: Fluid imbalance
     Dosage: UNK
     Route: 042
     Dates: start: 20050509, end: 20050510
  9. DEXTROSE\SODIUM CHLORIDE [Concomitant]
     Active Substance: DEXTROSE\SODIUM CHLORIDE
     Dosage: UNK
     Route: 042
     Dates: start: 20061126, end: 20061127
  10. BETAMETHASONE SODIUM PHOSPHATE [Concomitant]
     Active Substance: BETAMETHASONE SODIUM PHOSPHATE
     Indication: Ear infection
     Dosage: UNK
     Route: 050
     Dates: start: 20070227, end: 20070606
  11. BETAMETHASONE SODIUM PHOSPHATE [Concomitant]
     Active Substance: BETAMETHASONE SODIUM PHOSPHATE
     Dosage: UNK
     Route: 050
     Dates: start: 20061124, end: 20061129
  12. BETAMETHASONE SODIUM PHOSPHATE [Concomitant]
     Active Substance: BETAMETHASONE SODIUM PHOSPHATE
     Dosage: UNK
     Route: 050
     Dates: start: 20061126, end: 20061128
  13. ACETAMINOPHEN [Concomitant]
     Active Substance: ACETAMINOPHEN
     Indication: Pyrexia
     Dosage: UNK
     Route: 048
     Dates: start: 20110311, end: 20110311
  14. ACETAMINOPHEN [Concomitant]
     Active Substance: ACETAMINOPHEN
     Indication: Premedication
     Dosage: UNK
     Route: 065
     Dates: start: 20070823
  15. ACETAMINOPHEN [Concomitant]
     Active Substance: ACETAMINOPHEN
     Indication: Pain
     Dosage: UNK
     Route: 048
     Dates: start: 2007
  16. ACETAMINOPHEN [Concomitant]
     Active Substance: ACETAMINOPHEN
     Dosage: UNK
     Route: 048
     Dates: start: 20061126, end: 20061128
  17. ACETAMINOPHEN [Concomitant]
     Active Substance: ACETAMINOPHEN
     Dosage: UNK
     Route: 048
     Dates: start: 20050521, end: 20050601
  18. FLUTICASONE PROPIONATE [Concomitant]
     Active Substance: FLUTICASONE PROPIONATE
     Indication: Hypersensitivity
     Dosage: UNK
     Route: 045
     Dates: start: 200706, end: 200706
  19. PARAFFIN\WAX, EMULSIFYING [Concomitant]
     Active Substance: PARAFFIN\WAX, EMULSIFYING
     Indication: Dry skin
     Dosage: UNK
     Route: 061
     Dates: start: 20050427, end: 20050511
  20. PHENERGAN [Concomitant]
     Active Substance: PROMETHAZINE HYDROCHLORIDE
     Indication: Insomnia
     Dosage: UNK
     Route: 048
     Dates: start: 2013
  21. ENALAPRIL [Concomitant]
     Active Substance: ENALAPRIL
     Indication: Left ventricular dilatation
     Dosage: UNK
     Route: 048
     Dates: start: 2010
  22. CLARITHROMYCIN [Concomitant]
     Active Substance: CLARITHROMYCIN
     Indication: Upper respiratory tract infection
     Dosage: UNK
     Route: 048
     Dates: start: 201709, end: 201709
  23. BONJELA [CETALKONIUM CHLORIDE;CHOLINE SALICYLATE] [Concomitant]
     Indication: Teething
     Dosage: UNK
     Route: 061
     Dates: start: 20050522, end: 20050522
  24. AMOXICILLIN\CLAVULANATE POTASSIUM [Concomitant]
     Active Substance: AMOXICILLIN\CLAVULANATE POTASSIUM
     Indication: Infection
     Dosage: UNK
     Route: 048
     Dates: start: 20061126, end: 20061128
  25. AMOXICILLIN\CLAVULANATE POTASSIUM [Concomitant]
     Active Substance: AMOXICILLIN\CLAVULANATE POTASSIUM
     Dosage: UNK
     Route: 048
     Dates: start: 20050601, end: 20050603
  26. AMOXICILLIN\CLAVULANATE POTASSIUM [Concomitant]
     Active Substance: AMOXICILLIN\CLAVULANATE POTASSIUM
     Dosage: UNK
     Route: 048
     Dates: start: 20061124, end: 20061129
  27. LACTULOSE [Concomitant]
     Active Substance: LACTULOSE
     Indication: Constipation
     Dosage: UNK
     Route: 048
     Dates: start: 201510
  28. CHLORPHENIRAMINE MALEATE [Concomitant]
     Active Substance: CHLORPHENIRAMINE MALEATE
     Indication: Premedication
     Dosage: UNK
     Route: 065
     Dates: start: 20070823
  29. RITALIN [Concomitant]
     Active Substance: METHYLPHENIDATE HYDROCHLORIDE
     Indication: Attention deficit hyperactivity disorder
     Dosage: UNK
     Route: 048
     Dates: start: 2011
  30. AMOXICILLIN\CLAVULANIC ACID [Concomitant]
     Active Substance: AMOXICILLIN\CLAVULANIC ACID
     Indication: Ear infection
     Dosage: UNK
     Route: 048
  31. AMOXICILLIN\CLAVULANIC ACID [Concomitant]
     Active Substance: AMOXICILLIN\CLAVULANIC ACID
     Dosage: UNK
     Route: 042
     Dates: start: 20061126, end: 20061127
  32. CEFIXIME [Concomitant]
     Active Substance: CEFIXIME
     Indication: Respiratory tract infection
     Dosage: UNK
     Route: 048
     Dates: start: 20081212, end: 20081219
  33. CEFIXIME [Concomitant]
     Active Substance: CEFIXIME
     Dosage: UNK
     Route: 048
     Dates: start: 20080530, end: 20080606
  34. FUSIDIC ACID [Concomitant]
     Active Substance: FUSIDIC ACID
     Indication: Ocular discomfort
     Dosage: UNK
     Route: 047
     Dates: start: 20050526, end: 20050527
  35. MELATONIN [Concomitant]
     Active Substance: MELATONIN
     Indication: Sleep disorder
     Dosage: UNK
     Route: 048
     Dates: start: 2012
  36. IBUPROFEN [Concomitant]
     Active Substance: IBUPROFEN
     Indication: Pyrexia
     Dosage: UNK
     Route: 048
     Dates: start: 20110311, end: 20110311
  37. IBUPROFEN [Concomitant]
     Active Substance: IBUPROFEN
     Indication: Pain
     Dosage: UNK
     Route: 048
     Dates: start: 20061126, end: 20061127
  38. OFLOXACIN [Concomitant]
     Active Substance: OFLOXACIN
     Indication: Excessive cerumen production
     Dosage: UNK
     Route: 061
     Dates: start: 20090217, end: 20090224
  39. VARIVAX [Concomitant]
     Active Substance: VARICELLA-ZOSTER VIRUS STRAIN OKA/MERCK LIVE ANTIGEN
     Indication: Immunisation
     Dosage: UNK
     Route: 030
     Dates: start: 20080812, end: 20080812
  40. VARIVAX [Concomitant]
     Active Substance: VARICELLA-ZOSTER VIRUS STRAIN OKA/MERCK LIVE ANTIGEN
     Dosage: UNK
     Route: 030
     Dates: start: 20101209, end: 20101209
  41. RANITIDINE [Concomitant]
     Active Substance: RANITIDINE
     Indication: Reflux gastritis
     Dosage: UNK
     Route: 048
     Dates: start: 20050516, end: 20050527
  42. MOVICOL [Concomitant]
     Active Substance: POLYETHYLENE GLYCOL 3350\POTASSIUM CHLORIDE\SODIUM BICARBONATE\SODIUM CHLORIDE
     Indication: Constipation
     Dosage: UNK
     Route: 048
  43. MOVICOL [Concomitant]
     Active Substance: POLYETHYLENE GLYCOL 3350\POTASSIUM CHLORIDE\SODIUM BICARBONATE\SODIUM CHLORIDE
     Dosage: UNK
     Route: 048
     Dates: start: 20071214, end: 20071228
  44. GLYCOPYRRONIUM [Concomitant]
     Active Substance: GLYCOPYRRONIUM
     Indication: Bronchial disorder
     Dosage: UNK
     Route: 048
  45. FLUCLOXACILLIN [Concomitant]
     Active Substance: FLUCLOXACILLIN
     Indication: Infection
     Dosage: UNK
     Route: 048
     Dates: start: 20050601, end: 20050601
  46. CLONAZEPAM [Concomitant]
     Active Substance: CLONAZEPAM
     Indication: Seizure
     Dosage: UNK
     Route: 065
     Dates: start: 20180502
  47. FUROSEMIDE [Concomitant]
     Active Substance: FUROSEMIDE
     Indication: Lung disorder
     Dosage: UNK
     Route: 065
     Dates: start: 20180510, end: 20180626
  48. AMOXICILLIN [Concomitant]
     Active Substance: AMOXICILLIN
     Indication: Chest discomfort
     Dosage: UNK
     Route: 065
     Dates: start: 20190302, end: 20190309
  49. RUFINAMIDE [Concomitant]
     Active Substance: RUFINAMIDE
     Indication: Seizure
     Dosage: UNK
     Route: 065
     Dates: start: 20190115
  50. LEVETIRACETAM [Concomitant]
     Active Substance: LEVETIRACETAM
     Indication: Seizure
     Dosage: UNK
     Route: 065
     Dates: start: 20180525, end: 20180820
  51. LEVETIRACETAM [Concomitant]
     Active Substance: LEVETIRACETAM
     Dosage: UNK
     Route: 065
     Dates: start: 20180821

REACTIONS (9)
  - Lower respiratory tract infection [Recovered/Resolved]
  - Dysphagia [Recovered/Resolved]
  - Pyrexia [Recovered/Resolved]
  - Respiratory rate increased [Recovered/Resolved]
  - Increased upper airway secretion [Recovered/Resolved]
  - Urinary tract infection [Recovered/Resolved]
  - Heart rate increased [Recovered/Resolved]
  - Cyanosis [Recovered/Resolved]
  - Gait disturbance [Recovered/Resolved]

NARRATIVE: CASE EVENT DATE: 20110311
